FAERS Safety Report 4848306-6 (Version None)
Quarter: 2005Q4

REPORT INFORMATION
  Report Type: 
  Country: None (occurrence: None)
  Receive Date: 20051207
  Receipt Date: 20051207
  Transmission Date: 20060501
  Serious: Yes (Hospitalization)
  Sender: FDA-Public Use
  Company Number: None

PATIENT
  Age: 49 Year
  Sex: Female
  Weight: 53.0709 kg

DRUGS (2)
  1. FOSAMAX [Suspect]
     Indication: OSTEOPOROSIS
     Dosage: 70 MG ONCE WEEKLY ORAL
     Route: 048
     Dates: start: 20051125
  2. VITAMINS [Concomitant]

REACTIONS (3)
  - CONFUSIONAL STATE [None]
  - FEELING ABNORMAL [None]
  - GLOBAL AMNESIA [None]
